FAERS Safety Report 4923257-7 (Version None)
Quarter: 2006Q1

REPORT INFORMATION
  Report Type: 
  Country: None (occurrence: None)
  Receive Date: 20060127
  Receipt Date: 20051205
  Transmission Date: 20060701
  Serious: Yes (Other)
  Sender: FDA-Public Use
  Company Number: 2005165997

PATIENT
  Age: 76 Year
  Sex: Male
  Weight: 127.0072 kg

DRUGS (10)
  1. LYRICA [Suspect]
     Indication: DEMYELINATING POLYNEUROPATHY
     Dosage: 150 MG (75 MG, 2 IN 1 D), ORAL
     Route: 048
     Dates: start: 20051001
  2. ACCUPRIL [Concomitant]
  3. LIPITOR [Concomitant]
  4. NITROCOR (GLYCERYL TRINITRATE) [Concomitant]
  5. LEVOTHYROXINE SODIUM [Concomitant]
  6. TORSEMIDE [Concomitant]
  7. CETYLSALICYLIC ACID (ACETYLSALICYLIC ACID) [Concomitant]
  8. MULTIVITAMIN [Concomitant]
  9. DOCUSATE (DOCUSATE) [Concomitant]
  10. LAXATIVES (LAXATIVES) [Concomitant]

REACTIONS (6)
  - ANXIETY [None]
  - DRUG INEFFECTIVE [None]
  - FLUID RETENTION [None]
  - INSOMNIA [None]
  - OEDEMA [None]
  - WEIGHT INCREASED [None]
